FAERS Safety Report 11663426 (Version 1)
Quarter: 2015Q4

REPORT INFORMATION
  Report Type: Spontaneous
  Country: US (occurrence: US)
  Receive Date: 20151027
  Receipt Date: 20151027
  Transmission Date: 20160304
  Serious: No
  Sender: FDA-Public Use
  Company Number: US-PFIZER INC-2015346059

PATIENT
  Age: 81 Year
  Sex: Male

DRUGS (1)
  1. SUTENT [Suspect]
     Active Substance: SUNITINIB MALATE
     Dosage: 25 MG, CYCLIC (12.5 MG CAPSULE / TAKE TWO CAPSULES BY MOUTH ONCE DAILY FOR 28 DAYS, FOLLOWED BY 14 )
     Route: 048
     Dates: start: 201411

REACTIONS (1)
  - Diarrhoea [Unknown]
